FAERS Safety Report 18971195 (Version 2)
Quarter: 2021Q2

REPORT INFORMATION
  Report Type: Spontaneous
  Country: US (occurrence: US)
  Receive Date: 20210305
  Receipt Date: 20210603
  Transmission Date: 20210717
  Serious: No
  Sender: FDA-Public Use
  Company Number: US-GLAXOSMITHKLINE-US2021055887

PATIENT
  Age: 31 Year
  Sex: Female

DRUGS (2)
  1. COVID19 VACCINE [Concomitant]
     Indication: PROPHYLAXIS
     Dosage: UNK
  2. BENLYSTA [Suspect]
     Active Substance: BELIMUMAB
     Indication: SYSTEMIC LUPUS ERYTHEMATOSUS
     Dosage: UNK,200MG/ML
     Route: 058
     Dates: start: 20210226

REACTIONS (19)
  - Viral upper respiratory tract infection [Recovered/Resolved]
  - Mouth ulceration [Not Recovered/Not Resolved]
  - White blood cell count decreased [Unknown]
  - Product dose omission issue [Unknown]
  - Oropharyngeal pain [Unknown]
  - Infection [Unknown]
  - Underdose [Unknown]
  - Depression [Unknown]
  - Accidental exposure to product [Unknown]
  - Head discomfort [Recovered/Resolved]
  - Condition aggravated [Recovered/Resolved]
  - Exposure via skin contact [Recovered/Resolved]
  - Streptococcal infection [Recovered/Resolved]
  - Mood altered [Unknown]
  - Skin burning sensation [Recovered/Resolved]
  - Cough [Not Recovered/Not Resolved]
  - Wrong technique in product usage process [Unknown]
  - Chest pain [Unknown]
  - Injection site pain [Recovered/Resolved]

NARRATIVE: CASE EVENT DATE: 20210226
